FAERS Safety Report 22232072 (Version 1)
Quarter: 2023Q2

REPORT INFORMATION
  Report Type: Spontaneous
  Country: US (occurrence: US)
  Receive Date: 20230420
  Receipt Date: 20230420
  Transmission Date: 20230721
  Serious: No
  Sender: FDA-Public Use
  Company Number: US-PTx-2022000011

PATIENT
  Sex: Male

DRUGS (1)
  1. LEUKINE [Suspect]
     Active Substance: SARGRAMOSTIM
     Indication: Parkinson^s disease
     Dosage: (5 DAYS ON 2 DAYS OFF) FOR 12 MONTHS
     Route: 058

REACTIONS (2)
  - White blood cell count increased [Recovered/Resolved]
  - Injection site reaction [Recovered/Resolved]
